FAERS Safety Report 16651452 (Version 1)
Quarter: 2019Q3

REPORT INFORMATION
  Report Type: Other
  Country: GB (occurrence: GB)
  Receive Date: 20190731
  Receipt Date: 20190731
  Transmission Date: 20191004
  Serious: Yes (Hospitalization)
  Sender: FDA-Public Use
  Company Number: GB-STRIDES ARCOLAB LIMITED-2019SP006358

PATIENT
  Age: 33 Year
  Sex: Female
  Weight: 66 kg

DRUGS (23)
  1. DOCUSATE SODIUM. [Suspect]
     Active Substance: DOCUSATE SODIUM
     Indication: CONSTIPATION
     Dosage: 200 MILLIGRAM DAILY
     Route: 048
  2. PARACETAMOL [Suspect]
     Active Substance: ACETAMINOPHEN
     Indication: PAIN
     Dosage: 500 MG (MAX 4G DAILY 1000 MG FOUR TIMES A DAY PRN 7 DAYS)
     Route: 048
  3. MULTIVITAMINS                      /00116001/ [Suspect]
     Active Substance: VITAMINS
     Indication: PANCREATIC FAILURE
     Dosage: TABLETS/CAPSULES - 1 TABLET EACH MORNING 28 DAYS
     Route: 048
  4. CREON [Suspect]
     Active Substance: PANCRELIPASE AMYLASE\PANCRELIPASE LIPASE\PANCRELIPASE PROTEASE
     Indication: PANCREATIC FAILURE
     Dosage: 10000 MG (5 CAPSULE THREE TIMES A DAY WITH FOOD 07:00, 12:00, 17:00)
     Route: 048
  5. SALBUTAMOL [Suspect]
     Active Substance: ALBUTEROL
     Indication: PRODUCT USED FOR UNKNOWN INDICATION
     Dosage: 100 ?G, 2 PUFF(S) PRN 28 DAYS
     Route: 065
  6. COLOBREATHE [Suspect]
     Active Substance: COLISTIMETHATE SODIUM
     Indication: CYSTIC FIBROSIS
     Dosage: 166250 IU, BID (INHALATION POWDER, HARD CAPSULE)
     Dates: start: 20140523, end: 20190226
  7. VITAMIN A + D /00343801/ [Suspect]
     Active Substance: ERGOCALCIFEROL\RETINOL
     Indication: PANCREATIC FAILURE
     Dosage: 2 CAPSULES EVERY MORNING AT 6 A.M.
     Route: 048
  8. COLECALCIFEROL [Suspect]
     Active Substance: CHOLECALCIFEROL
     Indication: PANCREATIC FAILURE
     Dosage: 800 DF CAPSULES/TABLETS, 800 UNIT EACH MORNING 28 DAYS
     Route: 048
  9. AZITHROMYCIN ANHYDROUS. [Suspect]
     Active Substance: AZITHROMYCIN ANHYDROUS
     Indication: PSEUDOMONAS INFECTION
     Dosage: 250 MG (EACH MORNING 28 DAYS)
     Route: 048
  10. COLOBREATHE [Suspect]
     Active Substance: COLISTIMETHATE SODIUM
     Indication: PSEUDOMONAS INFECTION
     Dosage: UNK
     Route: 065
  11. DORNASE ALFA. [Suspect]
     Active Substance: DORNASE ALFA
     Indication: PRODUCT USED FOR UNKNOWN INDICATION
     Dosage: 2.5 MG, 2.5 MG EACH MORNING 2~ DAYS, MUCOLYTIC (NEBULISER SOLUTION)
     Route: 065
  12. SYMBICORT [Suspect]
     Active Substance: BUDESONIDE\FORMOTEROL FUMARATE DIHYDRATE
     Indication: ASTHMA
     Dosage: BUDESONIDE 200MCG I FORMETROL6MCG, 2 PUFF(S) TWICE DAILY MORNING
     Route: 065
  13. MACROGOL, SODIUM CHLORIDE, POTASSIUM CHLORIDE, SODIUM BICARBONATE [Suspect]
     Active Substance: POLYETHYLENE GLYCOL 3350\POTASSIUM CHLORIDE\SODIUM BICARBONATE\SODIUM CHLORIDE
     Indication: DISTAL INTESTINAL OBSTRUCTION SYNDROME
     Dosage: 1 SACHET TWICE DAILY AT LOAM AND 10PM 10 DAYS (POWDER)
     Route: 048
  14. CARBOCISTEINE [Suspect]
     Active Substance: CARBOCYSTEINE
     Indication: PRODUCT USED FOR UNKNOWN INDICATION
     Dosage: 375 MG,(750 MG THREE  TIMES A DAY, MUCOLYTIC)
     Route: 048
  15. PARACETAMOL [Suspect]
     Active Substance: ACETAMINOPHEN
     Indication: PYREXIA
     Dosage: UNK
     Route: 065
  16. CICLESONIDE [Suspect]
     Active Substance: CICLESONIDE
     Indication: ASTHMA
     Dosage: 160 ?G EACH MORNING
     Route: 065
  17. SODIUM CHLORIDE. [Suspect]
     Active Substance: SODIUM CHLORIDE
     Indication: HYPONATRAEMIA
     Dosage: 4 ML, QD
     Route: 065
  18. ALFA-TOCOPHERYL ACETATE [Suspect]
     Active Substance: .ALPHA.-TOCOPHEROL ACETATE
     Indication: PANCREATIC FAILURE
     Dosage: 134 MG, EVERY MORNING AT 6 A.M.
     Route: 048
  19. FLUTICASONE FUROATE [Suspect]
     Active Substance: FLUTICASONE FUROATE
     Indication: RHINITIS
     Dosage: 27.5 ?G EACH MORNING
     Route: 065
  20. ZOPICLONE [Suspect]
     Active Substance: ZOPICLONE
     Indication: INSOMNIA
     Dosage: 3.75 MG, EACH NIGHT 28 DAYS
     Route: 048
  21. OMEPRAZOLE. [Suspect]
     Active Substance: OMEPRAZOLE
     Indication: GASTROOESOPHAGEAL REFLUX DISEASE
     Dosage: 40 MG, UNKNOWN
     Route: 048
  22. SODIUM CHLORIDE. [Suspect]
     Active Substance: SODIUM CHLORIDE
     Dosage: 1800 MG, TID (TABLET)
     Route: 048
  23. MONTELUKAST [Suspect]
     Active Substance: MONTELUKAST SODIUM
     Indication: ASTHMA
     Dosage: 10 MG, EACH NIGHT 28 DAYS
     Route: 048

REACTIONS (9)
  - Condition aggravated [Recovered/Resolved]
  - Decreased appetite [Recovered/Resolved]
  - Influenza [Recovered/Resolved]
  - Chest discomfort [Recovered/Resolved]
  - Cough [Recovered/Resolved]
  - Off label use [Unknown]
  - Hypersomnia [Recovered/Resolved]
  - Nasopharyngitis [Recovered/Resolved]
  - Bone pain [Recovered/Resolved]

NARRATIVE: CASE EVENT DATE: 20190222
